FAERS Safety Report 22032281 (Version 1)
Quarter: 2023Q1

REPORT INFORMATION
  Report Type: Report from Study
  Country: CA (occurrence: CA)
  Receive Date: 20230224
  Receipt Date: 20230224
  Transmission Date: 20230418
  Serious: Yes (Death, Hospitalization, Other)
  Sender: FDA-Public Use
  Company Number: CA-ABBVIE-4274553

PATIENT
  Sex: Male

DRUGS (1)
  1. LUPRON DEPOT [Suspect]
     Active Substance: LEUPROLIDE ACETATE
     Indication: Prostate cancer
     Route: 030
     Dates: start: 20200115

REACTIONS (10)
  - Respiratory disorder [Fatal]
  - Respiratory disorder [Recovering/Resolving]
  - Respiratory disorder [Unknown]
  - Aphasia [Unknown]
  - Hemiplegia [Unknown]
  - General symptom [Unknown]
  - Cerebrovascular accident [Unknown]
  - Tachycardia [Unknown]
  - Aspiration [Unknown]
  - Pulmonary embolism [Unknown]

NARRATIVE: CASE EVENT DATE: 20220101
